FAERS Safety Report 10091605 (Version 1)
Quarter: 2014Q2

REPORT INFORMATION
  Report Type: Spontaneous
  Country: US (occurrence: US)
  Receive Date: 20140421
  Receipt Date: 20140421
  Transmission Date: 20141212
  Serious: No
  Sender: FDA-Public Use
  Company Number: US-PURDUE-USA-2012-0093937

PATIENT
  Age: 48 Year
  Sex: Male

DRUGS (2)
  1. OXYCODONE HCL TABLETS (91-490) [Suspect]
     Indication: BACK PAIN
     Dosage: 30 MG, Q4H
     Route: 048
     Dates: start: 2007
  2. OXYCONTIN (NDA 22-272) [Suspect]
     Indication: INSOMNIA
     Dosage: 60-90 MG QHS
     Route: 048
     Dates: start: 2007

REACTIONS (1)
  - Urinary hesitation [Not Recovered/Not Resolved]
